FAERS Safety Report 7998138-5 (Version None)
Quarter: 2011Q4

REPORT INFORMATION
  Report Type: 
  Country: None (occurrence: None)
  Receive Date: 20111221
  Receipt Date: 20110225
  Transmission Date: 20120403
  Serious: No
  Sender: FDA-Public Use
  Company Number: US-GLAXOSMITHKLINE-A0916609A

PATIENT
  Age: 59 Year
  Sex: Male

DRUGS (7)
  1. CLOPIDOGREL [Concomitant]
  2. NEBIVOLOL HCL [Concomitant]
  3. ENALAPRIL MALEATE [Concomitant]
  4. GLIPIZIDE [Concomitant]
  5. NIASPAN [Suspect]
     Indication: BLOOD TRIGLYCERIDES INCREASED
     Dosage: 500MG AT NIGHT
     Route: 048
     Dates: start: 20101106
  6. ACETYLSALICYLIC ACID SRT [Concomitant]
  7. LOVAZA [Suspect]
     Indication: PRODUCT USED FOR UNKNOWN INDICATION
     Dosage: 2G PER DAY
     Route: 048

REACTIONS (2)
  - ABDOMINAL DISCOMFORT [None]
  - NAUSEA [None]
